FAERS Safety Report 5380263-9 (Version None)
Quarter: 2007Q3

REPORT INFORMATION
  Report Type: 
  Country: None (occurrence: None)
  Receive Date: 20070703
  Receipt Date: 20070619
  Transmission Date: 20080115
  Serious: Yes (Hospitalization)
  Sender: FDA-Public Use
  Company Number: 07TR000898

PATIENT
  Age: 54 Year
  Sex: Female

DRUGS (3)
  1. LITHOBID [Suspect]
     Indication: MANIA
     Dosage: 1500; 1200 MG, QD
  2. RISPERIDONE [Concomitant]
  3. BIPERIDEN HYDROCHLORIDE TAB [Concomitant]

REACTIONS (15)
  - BLOOD IRON DECREASED [None]
  - DEEP VEIN THROMBOSIS [None]
  - DISORIENTATION [None]
  - EXTRAPYRAMIDAL DISORDER [None]
  - FIBRIN D DIMER INCREASED [None]
  - FIBRIN DEGRADATION PRODUCTS INCREASED [None]
  - HAEMOGLOBIN DECREASED [None]
  - HYPERNATRAEMIA [None]
  - HYPERTHYROIDISM [None]
  - MYOGLOBINAEMIA [None]
  - NEUROLEPTIC MALIGNANT SYNDROME [None]
  - PNEUMONIA [None]
  - SOMNOLENCE [None]
  - THALASSAEMIA BETA [None]
  - URINARY INCONTINENCE [None]
